FAERS Safety Report 4524257-1 (Version None)
Quarter: 2004Q4

REPORT INFORMATION
  Report Type: 
  Country: None (occurrence: None)
  Receive Date: 20041119
  Receipt Date: 20041005
  Transmission Date: 20050328
  Serious: No
  Sender: FDA-Public Use
  Company Number: PHEH2004US10732

PATIENT
  Age: 52 Year
  Sex: Female

DRUGS (2)
  1. ZELNORM [Suspect]
     Indication: IRRITABLE BOWEL SYNDROME
     Dosage: 6 MG, BID; ORAL  (SEE IMAGE)
     Route: 048
     Dates: start: 20040912, end: 20040922
  2. ZELNORM [Suspect]
     Indication: IRRITABLE BOWEL SYNDROME
     Dosage: 6 MG, BID; ORAL  (SEE IMAGE)
     Route: 048
     Dates: start: 20040913

REACTIONS (5)
  - AGITATION [None]
  - HEADACHE [None]
  - NERVOUSNESS [None]
  - OEDEMA PERIPHERAL [None]
  - PSYCHOMOTOR HYPERACTIVITY [None]
